FAERS Safety Report 4844666-0 (Version None)
Quarter: 2005Q4

REPORT INFORMATION
  Report Type: 
  Country: None (occurrence: None)
  Receive Date: 20051205
  Receipt Date: 20051128
  Transmission Date: 20060501
  Serious: Yes (Hospitalization, Other)
  Sender: FDA-Public Use
  Company Number: JP-BOEHRINGER INGELHEIM PHARMACEUTICALS, INC.-2005-BP-20667NB

PATIENT
  Age: 65 Year
  Sex: Female

DRUGS (7)
  1. MICARDIS [Suspect]
     Indication: HYPERTENSION
     Route: 048
     Dates: start: 20051011, end: 20051121
  2. SERMION [Concomitant]
     Route: 048
  3. ADALAT [Concomitant]
     Route: 048
  4. PAXIL [Concomitant]
     Route: 048
  5. ALPRAZOLAM [Concomitant]
     Route: 048
  6. ACTOS [Concomitant]
     Route: 048
  7. ALLOPURINOL [Concomitant]
     Route: 048
     Dates: start: 20051011

REACTIONS (4)
  - DRUG ERUPTION [None]
  - GENERALISED OEDEMA [None]
  - LIVER DISORDER [None]
  - RENAL DISORDER [None]
